FAERS Safety Report 18752265 (Version 1)
Quarter: 2021Q1

REPORT INFORMATION
  Report Type: Spontaneous
  Country: US (occurrence: US)
  Receive Date: 20210118
  Receipt Date: 20210118
  Transmission Date: 20210419
  Serious: No
  Sender: FDA-Public Use
  Company Number: US-FOUNDATIONCONSUMERHC-2020-US-022835

PATIENT
  Sex: Female

DRUGS (1)
  1. PLAN B ONE?STEP [Suspect]
     Active Substance: LEVONORGESTREL
     Indication: PRODUCT USED FOR UNKNOWN INDICATION
     Dosage: 1.5 MG X 3 DOSES

REACTIONS (3)
  - Product use in unapproved indication [Unknown]
  - Intentional product misuse [Unknown]
  - Menstruation delayed [Not Recovered/Not Resolved]
